FAERS Safety Report 7528449-9 (Version None)
Quarter: 2011Q2

REPORT INFORMATION
  Report Type: 
  Country: None (occurrence: None)
  Receive Date: 20110517
  Receipt Date: 20110506
  Transmission Date: 20111010
  Serious: Yes (Other)
  Sender: FDA-Public Use
  Company Number: WWISSUE-596

PATIENT
  Sex: Female

DRUGS (1)
  1. DOXYCYCLINE HYCLATE [Suspect]
     Dosage: 100MG, ORAL
     Route: 048
     Dates: start: 20110418, end: 20110422

REACTIONS (1)
  - BURN OESOPHAGEAL [None]
